FAERS Safety Report 15222296 (Version 3)
Quarter: 2019Q1

REPORT INFORMATION
  Report Type: Spontaneous
  Country: CA (occurrence: CA)
  Receive Date: 20180731
  Receipt Date: 20190127
  Transmission Date: 20190417
  Serious: Yes (Hospitalization, Other)
  Sender: FDA-Public Use
  Company Number: CA-CELLTRION INC.-2018CA020605

PATIENT

DRUGS (16)
  1. INFLECTRA [Suspect]
     Active Substance: INFLIXIMAB-DYYB
     Indication: PSORIATIC ARTHROPATHY
     Dosage: 500 MG, CYCLIC (EVERY 0,2,6 WEEKS,THEN EVERY 8 WEEKS)
     Route: 042
     Dates: start: 20180529
  2. INFLECTRA [Suspect]
     Active Substance: INFLIXIMAB-DYYB
     Dosage: 500 MG CYCLIC (EVERY 6 WEEKS, THEN EVERY 8 WEEKS);
     Route: 042
     Dates: start: 20180814
  3. DULOXETINE. [Concomitant]
     Active Substance: DULOXETINE
     Dosage: 60 MG, DAILY
     Route: 048
  4. APO AMITRIPTYLINE [Concomitant]
     Active Substance: AMITRIPTYLINE
     Dosage: 50 MG, DAILY
     Route: 048
  5. HYDERM [Concomitant]
     Dosage: APPLY TO AFFECT AREAS OD FOR NO MORE THAN 7 DAYS
  6. TEVA CLINDAMYCIN [Concomitant]
     Active Substance: CLINDAMYCIN
     Dosage: 300 MG FOUR TIMES A DAY
     Route: 048
     Dates: start: 20180119
  7. BOTOX [Concomitant]
     Active Substance: ONABOTULINUMTOXINA
     Dosage: 100 U VIAL
  8. INFLECTRA [Suspect]
     Active Substance: INFLIXIMAB-DYYB
     Dosage: 500 MG, (6.10MG/KG) CYCLIC (EVERY 0,2,6 WEEKS THEN EVERY 8 WEEKS)
     Route: 042
     Dates: start: 20180614, end: 20180614
  9. DILANTIN [Concomitant]
     Active Substance: PHENYTOIN
     Dosage: 100MG ONCE A DAY
     Route: 048
  10. APO LORAZEPAM [Concomitant]
     Active Substance: LORAZEPAM
     Dosage: 1 MG ONE A DAY (BEDTIME IF NEEDED)
     Route: 048
  11. FUCIDIN [Concomitant]
     Active Substance: FUSIDATE SODIUM
     Dosage: APPLY TO AFFECT AREAS OD FOR NO MORE THAN 7 DAYS IN COMBINATION WITH HYDERM CREAM
  12. INFLECTRA [Suspect]
     Active Substance: INFLIXIMAB-DYYB
     Dosage: 500 MG CYCLIC (EVERY 6 WEEKS, THEN EVERY 8 WEEKS);
     Route: 042
     Dates: start: 20181025
  13. FOLIC ACID. [Concomitant]
     Active Substance: FOLIC ACID
     Dosage: 1 MG ONCE A DAY
     Route: 048
  14. TOPIRAMATE. [Concomitant]
     Active Substance: TOPIRAMATE
     Dosage: 25 MG, DAILY (3 TABLETS)
     Route: 048
  15. METHOTREXATE (METHOTREXATE SODIUM) [Concomitant]
     Active Substance: METHOTREXATE SODIUM
     Dosage: 25 MG WEEKLY
  16. SAXENDA [Concomitant]
     Active Substance: LIRAGLUTIDE
     Dosage: 0.6 MG, ONCE A DAY FOR ONE WEEK THEN INCREASED BY 0.6 MG EVERY WEEK UNTIL REACHING DOSE OF 3 MG.
     Route: 058

REACTIONS (3)
  - Nephrolithiasis [Unknown]
  - Product use issue [Unknown]
  - Urinary tract infection [Unknown]

NARRATIVE: CASE EVENT DATE: 2018
